FAERS Safety Report 23785860 (Version 1)
Quarter: 2024Q2

REPORT INFORMATION
  Report Type: Report from Study
  Country: US (occurrence: US)
  Receive Date: 20240425
  Receipt Date: 20240425
  Transmission Date: 20240716
  Serious: Yes (Hospitalization, Other)
  Sender: FDA-Public Use
  Company Number: US-ABBVIE-5717191

PATIENT
  Age: 58 Year
  Sex: Male

DRUGS (3)
  1. HUMIRA [Suspect]
     Active Substance: ADALIMUMAB
     Indication: Hidradenitis
     Dosage: FORM STRENGTH: 40 MILLIGRAM
     Route: 058
     Dates: start: 2018, end: 20240226
  2. HUMIRA [Suspect]
     Active Substance: ADALIMUMAB
     Dosage: FORM STRENGTH: 40 MILLIGRAM
     Route: 058
     Dates: start: 20240419
  3. APIXABAN [Concomitant]
     Active Substance: APIXABAN
     Indication: Product used for unknown indication

REACTIONS (7)
  - Obstructive pancreatitis [Unknown]
  - Hidradenitis [Not Recovered/Not Resolved]
  - Intestinal obstruction [Unknown]
  - Vomiting [Unknown]
  - Diarrhoea [Unknown]
  - Appendicectomy [Unknown]
  - Gallbladder enlargement [Unknown]

NARRATIVE: CASE EVENT DATE: 20240228
